FAERS Safety Report 14492121 (Version 1)
Quarter: 2018Q1

REPORT INFORMATION
  Report Type: Spontaneous
  Country: JP (occurrence: JP)
  Receive Date: 20180206
  Receipt Date: 20180206
  Transmission Date: 20180509
  Serious: Yes (Hospitalization)
  Sender: FDA-Public Use
  Company Number: JP-NOVOPROD-579388

PATIENT
  Age: 70 Year
  Sex: Female
  Weight: 61 kg

DRUGS (5)
  1. VICTOZA [Suspect]
     Active Substance: LIRAGLUTIDE
     Dosage: 0.9 MG, QD
     Route: 058
     Dates: start: 20170915, end: 20171221
  2. LANTUS XR [Suspect]
     Active Substance: INSULIN GLARGINE
     Indication: DIABETES MELLITUS
     Dosage: 30 IU, QD (0-0-0-30 UNITS/DAY)
     Route: 058
     Dates: start: 20170910
  3. VICTOZA [Suspect]
     Active Substance: LIRAGLUTIDE
     Dosage: 0.60 MG, QD
     Route: 058
     Dates: start: 20170914
  4. LANTUS XR [Suspect]
     Active Substance: INSULIN GLARGINE
     Dosage: 32 IU, QD  (0-0-0-32 UNITS/DAY)
     Route: 058
     Dates: start: 20170914, end: 20171221
  5. VICTOZA [Suspect]
     Active Substance: LIRAGLUTIDE
     Indication: DIABETES MELLITUS
     Dosage: 0.30 MG, QD
     Route: 058
     Dates: start: 20170911

REACTIONS (2)
  - Hyperglycaemic hyperosmolar nonketotic syndrome [Recovered/Resolved]
  - Off label use [Unknown]

NARRATIVE: CASE EVENT DATE: 20170911
